FAERS Safety Report 13185228 (Version 2)
Quarter: 2017Q2

REPORT INFORMATION
  Report Type: Spontaneous
  Country: BR (occurrence: BR)
  Receive Date: 20170203
  Receipt Date: 20170508
  Transmission Date: 20170830
  Serious: Yes (Hospitalization, Other)
  Sender: FDA-Public Use
  Company Number: PHHY2017BR016168

PATIENT
  Age: 79 Year
  Sex: Female

DRUGS (1)
  1. ZOLEDRONATE [Suspect]
     Active Substance: ZOLEDRONIC ACID
     Indication: OSTEOPOROSIS
     Dosage: 5 MG, Q12MO (5 DOSES)
     Route: 065

REACTIONS (4)
  - Primary sequestrum [Unknown]
  - Osteonecrosis of jaw [Recovered/Resolved]
  - Exposed bone in jaw [Recovered/Resolved]
  - Pain in jaw [Unknown]
